FAERS Safety Report 21623905 (Version 1)
Quarter: 2022Q4

REPORT INFORMATION
  Report Type: Spontaneous
  Country: DE (occurrence: DE)
  Receive Date: 20221121
  Receipt Date: 20221121
  Transmission Date: 20230113
  Serious: Yes (Hospitalization)
  Sender: FDA-Public Use
  Company Number: DE-ADRED-08463-01

PATIENT
  Age: 72 Year
  Sex: Male
  Weight: 60 kg

DRUGS (2)
  1. FLUOROURACIL [Suspect]
     Active Substance: FLUOROURACIL
     Indication: Product used for unknown indication
     Dosage: UNK, SCHEME 06082021
     Route: 065
  2. BEVACIZUMAB [Suspect]
     Active Substance: BEVACIZUMAB
     Indication: Product used for unknown indication
     Dosage: UNK, SCHEME 06082021
     Route: 065

REACTIONS (9)
  - Anaemia [Unknown]
  - Depressed level of consciousness [Unknown]
  - Loss of consciousness [Unknown]
  - Electrolyte imbalance [Unknown]
  - Renal impairment [Unknown]
  - Acute respiratory failure [Unknown]
  - Electrocardiogram abnormal [Unknown]
  - Cardiac arrest [Unknown]
  - Systemic infection [Unknown]
